FAERS Safety Report 4667165-8 (Version None)
Quarter: 2005Q2

REPORT INFORMATION
  Report Type: 
  Country: None (occurrence: None)
  Receive Date: 20050520
  Receipt Date: 20040721
  Transmission Date: 20051028
  Serious: Yes (Other)
  Sender: FDA-Public Use
  Company Number: PHEH2004US07967

PATIENT
  Age: 60 Year
  Sex: Female

DRUGS (2)
  1. ZOMETA [Suspect]
     Dosage: 4 MG EVERY 3 WEEKS
     Dates: start: 20040603, end: 20040624
  2. TAXOTERE [Concomitant]
     Indication: BREAST CANCER
     Dosage: 30 MG/M2  Q WKX2 WK W/ 1 WK OFF
     Dates: start: 20031120

REACTIONS (1)
  - OSTEONECROSIS [None]
